FAERS Safety Report 6387554-3 (Version None)
Quarter: 2009Q4

REPORT INFORMATION
  Report Type: 
  Country: None (occurrence: None)
  Receive Date: 20091005
  Receipt Date: 20090923
  Transmission Date: 20100525
  Serious: Yes (Hospitalization)
  Sender: FDA-Public Use
  Company Number: JP-RANBAXY-2009RR-25834

PATIENT
  Sex: Female

DRUGS (3)
  1. FENOFIBRATE [Suspect]
     Indication: HYPERLIPIDAEMIA
     Dosage: 100 MG, QD
     Route: 048
     Dates: start: 20090331, end: 20090626
  2. CANDESARTAN CILEXETIL [Concomitant]
     Dosage: UNK
     Dates: end: 20090702
  3. AMLODIPINE BESYLATE [Concomitant]
     Dosage: UNK
     Dates: end: 20090702

REACTIONS (1)
  - THROMBOCYTOPENIA [None]
